FAERS Safety Report 13906684 (Version 2)
Quarter: 2017Q4

REPORT INFORMATION
  Report Type: Spontaneous
  Country: US (occurrence: US)
  Receive Date: 20170825
  Receipt Date: 20171020
  Transmission Date: 20180320
  Serious: Yes (Death)
  Sender: FDA-Public Use
  Company Number: US-BRACCO-2017US03840

PATIENT
  Age: 84 Year
  Sex: Female

DRUGS (1)
  1. LUMASON [Suspect]
     Active Substance: SULFUR HEXAFLUORIDE
     Indication: ECHOCARDIOGRAM
     Dosage: 1 ML, SINGLE
     Route: 040
     Dates: start: 20170511, end: 20170511

REACTIONS (3)
  - Seizure [Fatal]
  - Adverse drug reaction [Fatal]
  - Cardio-respiratory arrest [Fatal]

NARRATIVE: CASE EVENT DATE: 20170511
